FAERS Safety Report 14984705 (Version 1)
Quarter: 2018Q2

REPORT INFORMATION
  Report Type: Spontaneous
  Country: JP (occurrence: JP)
  Receive Date: 20180607
  Receipt Date: 20180607
  Transmission Date: 20180711
  Serious: Yes (Other)
  Sender: FDA-Public Use
  Company Number: JP-JNJFOC-20180605292

PATIENT

DRUGS (1)
  1. XARELTO [Suspect]
     Active Substance: RIVAROXABAN
     Indication: ATRIAL FIBRILLATION
     Dosage: DOSAGE: 15 MG OR 10 MG, QD
     Route: 048

REACTIONS (6)
  - Epistaxis [Unknown]
  - Adverse event [Unknown]
  - Dermatitis exfoliative generalised [Unknown]
  - Melaena [Unknown]
  - Haematemesis [Unknown]
  - Embolic stroke [Unknown]
